FAERS Safety Report 7652199-1 (Version None)
Quarter: 2011Q3

REPORT INFORMATION
  Report Type: 
  Country: None (occurrence: None)
  Receive Date: 20110803
  Receipt Date: 20101115
  Transmission Date: 20111222
  Serious: No
  Sender: FDA-Public Use
  Company Number: US-BAYER-2010-000946

PATIENT
  Sex: Female

DRUGS (2)
  1. YAZ [Suspect]
     Indication: OVARIAN CYST
  2. YAZ [Suspect]
     Indication: ENDOMETRIOSIS

REACTIONS (2)
  - HYPOMENORRHOEA [None]
  - VAGINAL DISCHARGE [None]
